FAERS Safety Report 5731932-X (Version None)
Quarter: 2008Q2

REPORT INFORMATION
  Report Type: 
  Country: None (occurrence: None)
  Receive Date: 20080508
  Receipt Date: 20080429
  Transmission Date: 20081010
  Serious: Yes (Disabling, Other)
  Sender: FDA-Public Use
  Company Number: US-MERCK-0705USA01442

PATIENT
  Age: 50 Year
  Sex: Female

DRUGS (2)
  1. FOSAMAX [Suspect]
     Indication: OSTEOPOROSIS
     Route: 048
     Dates: start: 20010101, end: 20040101
  2. ESTROGENS (UNSPECIFIED) [Concomitant]
     Indication: HORMONE THERAPY
     Route: 065
     Dates: start: 19940101

REACTIONS (24)
  - ADVERSE EVENT [None]
  - AORTIC VALVE INCOMPETENCE [None]
  - ASTHMA [None]
  - BACK PAIN [None]
  - BLOOD CHOLESTEROL INCREASED [None]
  - DEPRESSION [None]
  - EYELID PTOSIS [None]
  - FALL [None]
  - FRACTURE [None]
  - HYPERLIPIDAEMIA [None]
  - INFLAMMATION [None]
  - LOWER LIMB FRACTURE [None]
  - MOUTH ULCERATION [None]
  - NEUROPATHY PERIPHERAL [None]
  - OSTEONECROSIS [None]
  - OSTEOPENIA [None]
  - PAIN IN JAW [None]
  - RIB FRACTURE [None]
  - ROTATOR CUFF SYNDROME [None]
  - SARCOIDOSIS [None]
  - SPINAL DISORDER [None]
  - TEMPOROMANDIBULAR JOINT SYNDROME [None]
  - TENDON INJURY [None]
  - UPPER LIMB FRACTURE [None]
